FAERS Safety Report 26090706 (Version 1)
Quarter: 2025Q4

REPORT INFORMATION
  Report Type: Report from Study
  Country: US (occurrence: US)
  Receive Date: 20251126
  Receipt Date: 20251126
  Transmission Date: 20260117
  Serious: Yes (Hospitalization, Other)
  Sender: ABBVIE
  Company Number: US-ABBVIE-6521828

PATIENT
  Age: 54 Year
  Sex: Female
  Weight: 89.811 kg

DRUGS (10)
  1. CREON [Suspect]
     Active Substance: PANCRELIPASE AMYLASE\PANCRELIPASE LIPASE\PANCRELIPASE PROTEASE
     Indication: Pancreatitis
     Dosage: FREQUENCY TEXT:  2 EACH MEAL AND 1 PER SNACK
     Route: 048
     Dates: start: 2022
  2. FARXIGA [Concomitant]
     Active Substance: DAPAGLIFLOZIN PROPANEDIOL
     Indication: Blood glucose
     Dosage: STOP DATE TEXT: ONGOING
  3. SEROQUEL [Concomitant]
     Active Substance: QUETIAPINE FUMARATE
     Indication: Insomnia
  4. LEXAPRO [Concomitant]
     Active Substance: ESCITALOPRAM OXALATE
     Indication: Depression
  5. SUCRALFATE [Concomitant]
     Active Substance: SUCRALFATE
     Indication: Gastritis
  6. ATORVASTATIN [Concomitant]
     Active Substance: ATORVASTATIN
     Indication: Blood cholesterol increased
  7. GLIMEPIRIDE [Concomitant]
     Active Substance: GLIMEPIRIDE
     Indication: Blood glucose
     Dosage: STOP DATE TEXT: ONGOING
  8. FENOFIBRATE [Concomitant]
     Active Substance: FENOFIBRATE
     Indication: Blood triglycerides
     Dosage: STOP DATE TEXT: ONGOING
  9. ZYRTEC [Concomitant]
     Active Substance: CETIRIZINE HYDROCHLORIDE
     Indication: Hypersensitivity
  10. LEVOTHYROXINE [Concomitant]
     Active Substance: LEVOTHYROXINE
     Indication: Thyroid disorder
     Dosage: STOP DATE TEXT: ONGOING

REACTIONS (15)
  - Trigeminal neuralgia [Not Recovered/Not Resolved]
  - Balance disorder [Recovered/Resolved]
  - Hypertension [Recovered/Resolved]
  - Dizziness [Unknown]
  - Pain [Unknown]
  - Nausea [Recovered/Resolved]
  - Swelling face [Unknown]
  - Dizziness [Recovered/Resolved]
  - Speech disorder [Unknown]
  - Tremor [Unknown]
  - Nausea [Unknown]
  - Pain [Recovered/Resolved]
  - Swelling face [Recovered/Resolved]
  - Balance disorder [Unknown]
  - Speech disorder [Recovered/Resolved]

NARRATIVE: CASE EVENT DATE: 20231117
